FAERS Safety Report 14001829 (Version 3)
Quarter: 2017Q4

REPORT INFORMATION
  Report Type: Spontaneous
  Country: US (occurrence: US)
  Receive Date: 20170922
  Receipt Date: 20171002
  Transmission Date: 20180321
  Serious: Yes (Other)
  Sender: FDA-Public Use
  Company Number: US-MYLANLABS-2017M1059178

PATIENT
  Sex: Female

DRUGS (2)
  1. MIDODRINE [Suspect]
     Active Substance: MIDODRINE
     Indication: PRODUCT USED FOR UNKNOWN INDICATION
     Dosage: 20 MG, TID
     Dates: start: 201511, end: 201601
  2. MIDODRINE [Suspect]
     Active Substance: MIDODRINE
     Dosage: UNK, TID

REACTIONS (8)
  - Drug ineffective [Unknown]
  - Anaemia [Unknown]
  - Syncope [Unknown]
  - Gastrointestinal haemorrhage [Unknown]
  - Paraesthesia [Unknown]
  - Condition aggravated [Unknown]
  - Insomnia [Unknown]
  - Dyspnoea [Unknown]
